FAERS Safety Report 8169103-2 (Version None)
Quarter: 2012Q1

REPORT INFORMATION
  Report Type: 
  Country: None (occurrence: None)
  Receive Date: 20120227
  Receipt Date: 20120224
  Transmission Date: 20120608
  Serious: No
  Sender: FDA-Public Use
  Company Number: US-PFIZER INC-2012049782

PATIENT
  Sex: Female

DRUGS (1)
  1. LYRICA [Suspect]
     Indication: RESTLESS LEGS SYNDROME
     Dosage: 50 MG, UNK
     Dates: start: 20110101

REACTIONS (1)
  - WEIGHT INCREASED [None]
